FAERS Safety Report 15490599 (Version 4)
Quarter: 2019Q2

REPORT INFORMATION
  Report Type: Spontaneous
  Country: US (occurrence: US)
  Receive Date: 20181011
  Receipt Date: 20190426
  Transmission Date: 20190711
  Serious: No
  Sender: FDA-Public Use
  Company Number: US-ACTELION-A-NJ2017-158723

PATIENT
  Sex: Female

DRUGS (3)
  1. WARFARIN [Concomitant]
     Active Substance: WARFARIN
  2. TRACLEER [Suspect]
     Active Substance: BOSENTAN
     Indication: PULMONARY ARTERIAL HYPERTENSION
     Dosage: 125 MG, BID
     Route: 048
  3. NIFEDIPINE. [Concomitant]
     Active Substance: NIFEDIPINE

REACTIONS (9)
  - Fatigue [Unknown]
  - Vitamin D decreased [Unknown]
  - Dizziness [Unknown]
  - Tooth abscess [Unknown]
  - Anaemia [Unknown]
  - Product dose omission [Unknown]
  - Feeling abnormal [Unknown]
  - Palpitations [Unknown]
  - Hypertension [Unknown]
